FAERS Safety Report 20814116 (Version 1)
Quarter: 2022Q2

REPORT INFORMATION
  Report Type: Spontaneous
  Country: US (occurrence: None)
  Receive Date: 20220510
  Receipt Date: 20220510
  Transmission Date: 20220721
  Serious: Yes (Death)
  Sender: FDA-Public Use
  Company Number: None

PATIENT
  Age: 43 Year
  Sex: Male
  Weight: 95.5 kg

DRUGS (3)
  1. TECARTUS [Suspect]
     Active Substance: BREXUCABTAGENE AUTOLEUCEL
     Indication: Acute lymphocytic leukaemia
     Dosage: OTHER FREQUENCY : ONCE;?
     Route: 042
     Dates: start: 20220110, end: 20220110
  2. Inotuzumab/mini CVD [Concomitant]
     Dates: start: 20220317, end: 20220412
  3. INOTUZUMAB OZOGAMICIN [Concomitant]
     Active Substance: INOTUZUMAB OZOGAMICIN
     Dates: start: 20220224, end: 20220310

REACTIONS (6)
  - Skin lesion [None]
  - Pyrexia [None]
  - Pneumonia [None]
  - Pseudomonas infection [None]
  - Respiratory failure [None]
  - Septic shock [None]

NARRATIVE: CASE EVENT DATE: 20220412
